FAERS Safety Report 12412426 (Version 9)
Quarter: 2022Q1

REPORT INFORMATION
  Report Type: Spontaneous
  Country: FR (occurrence: FR)
  Receive Date: 20160527
  Receipt Date: 20220322
  Transmission Date: 20220423
  Serious: Yes (Hospitalization, Disabling, Congenital Anomaly, Other)
  Sender: FDA-Public Use
  Company Number: FR-ABBVIE-16P-056-1637150-00

PATIENT
  Sex: Male
  Weight: 3.5 kg

DRUGS (3)
  1. VALPROATE SODIUM [Suspect]
     Active Substance: VALPROATE SODIUM
     Indication: Maternal exposure timing unspecified
     Route: 064
  2. NEURONTIN [Suspect]
     Active Substance: GABAPENTIN
     Indication: Maternal exposure timing unspecified
     Route: 064
  3. FOLIC ACID [Suspect]
     Active Substance: FOLIC ACID
     Indication: Maternal exposure timing unspecified
     Route: 064

REACTIONS (44)
  - Emotional disorder [Not Recovered/Not Resolved]
  - Disability [Not Recovered/Not Resolved]
  - Astigmatism [Unknown]
  - Fine motor skill dysfunction [Unknown]
  - Ill-defined disorder [Unknown]
  - Foot deformity [Unknown]
  - Intellectual disability [Unknown]
  - Educational problem [Unknown]
  - Foetal anticonvulsant syndrome [Not Recovered/Not Resolved]
  - Psychomotor hyperactivity [Not Recovered/Not Resolved]
  - Bronchitis [Unknown]
  - Dysmorphism [Unknown]
  - Disturbance in attention [Unknown]
  - Learning disorder [Unknown]
  - Migraine [Not Recovered/Not Resolved]
  - Thinking abnormal [Not Recovered/Not Resolved]
  - Anxiety [Not Recovered/Not Resolved]
  - Lacrimal duct procedure [Unknown]
  - Nasal disorder [Unknown]
  - Pharyngeal disorder [Unknown]
  - Ear disorder [Unknown]
  - Adenoidectomy [Unknown]
  - Hypermobility syndrome [Unknown]
  - Disturbance in attention [Unknown]
  - Scoliosis [Unknown]
  - Hypotonia [Unknown]
  - Dysgraphia [Unknown]
  - Visual impairment [Unknown]
  - Cognitive disorder [Unknown]
  - Myopia [Unknown]
  - Bone disorder [Unknown]
  - Tremor [Unknown]
  - Mental impairment [Unknown]
  - Disorientation [Unknown]
  - Visuospatial deficit [Unknown]
  - Otitis media [Unknown]
  - Ear infection [Unknown]
  - Sleep disorder [Unknown]
  - Surgery [Unknown]
  - Abdominal pain upper [Unknown]
  - Vomiting [Unknown]
  - Headache [Unknown]
  - Nausea [Unknown]
  - Foetal exposure during pregnancy [Unknown]

NARRATIVE: CASE EVENT DATE: 20040101
